FAERS Safety Report 12900198 (Version 1)
Quarter: 2016Q4

REPORT INFORMATION
  Report Type: Spontaneous
  Country: PR (occurrence: US)
  Receive Date: 20161101
  Receipt Date: 20161101
  Transmission Date: 20170207
  Serious: Yes (Other)
  Sender: FDA-Public Use
  Company Number: PR-ELI_LILLY_AND_COMPANY-US201610009418

PATIENT
  Age: 51 Year
  Sex: Male

DRUGS (3)
  1. 5-FU                               /00098801/ [Concomitant]
     Active Substance: FLUOROURACIL
  2. ERBITUX [Suspect]
     Active Substance: CETUXIMAB
     Indication: HEAD AND NECK CANCER
     Dosage: 531 MG, UNKNOWN
     Route: 065
  3. CISPLATIN. [Concomitant]
     Active Substance: CISPLATIN

REACTIONS (1)
  - Infusion related reaction [Recovered/Resolved]

NARRATIVE: CASE EVENT DATE: 20161025
